FAERS Safety Report 8444625-5 (Version None)
Quarter: 2012Q2

REPORT INFORMATION
  Report Type: 
  Country: None (occurrence: None)
  Receive Date: 20120618
  Receipt Date: 20120618
  Transmission Date: 20120825
  Serious: Yes (Death)
  Sender: FDA-Public Use
  Company Number: US-PFIZER INC-2011US-49407

PATIENT
  Age: 40 Year

DRUGS (3)
  1. VENLAFAXINE HCL [Suspect]
     Dosage: UNK
     Route: 065
  2. VERAPAMIL HCL [Suspect]
     Dosage: UNK
     Route: 065
  3. COCAINE [Suspect]
     Dosage: UNK
     Route: 065

REACTIONS (1)
  - COMPLETED SUICIDE [None]
